FAERS Safety Report 16325525 (Version 1)
Quarter: 2019Q2

REPORT INFORMATION
  Report Type: Spontaneous
  Country: US (occurrence: US)
  Receive Date: 20190516
  Receipt Date: 20190516
  Transmission Date: 20190711
  Serious: Yes (Death)
  Sender: FDA-Public Use
  Company Number: None

PATIENT
  Sex: Male

DRUGS (2)
  1. LUPRON DEPOT [Suspect]
     Active Substance: LEUPROLIDE ACETATE
     Indication: PROSTATE CANCER
     Dosage: ?          OTHER FREQUENCY:ONCE EVERY 3 MTHS;?
     Route: 030
  2. ZOLOFT, ALLOPURINOL, OMEPRAZOLE, IBUPROFEN [Concomitant]

REACTIONS (1)
  - Death [None]
